FAERS Safety Report 25306222 (Version 1)
Quarter: 2025Q2

REPORT INFORMATION
  Report Type: Report from Study
  Country: CA (occurrence: CA)
  Receive Date: 20250513
  Receipt Date: 20250513
  Transmission Date: 20250716
  Serious: Yes (Hospitalization, Other)
  Sender: CSL BEHRING
  Company Number: CA-Vifor (International) Inc.-VIT-2024-10387

PATIENT
  Age: 81 Year
  Sex: Male

DRUGS (6)
  1. VELTASSA [Suspect]
     Active Substance: PATIROMER
     Indication: Product used for unknown indication
     Dosage: 16.8,G,QD
     Route: 048
     Dates: start: 20230713
  2. RAMIPRIL [Concomitant]
     Active Substance: RAMIPRIL
  3. LANTUS [Concomitant]
     Active Substance: INSULIN GLARGINE
  4. DILTIAZEM [Concomitant]
     Active Substance: DILTIAZEM
  5. ASPIRIN [Concomitant]
     Active Substance: ASPIRIN
  6. ROSUVASTATIN [Concomitant]
     Active Substance: ROSUVASTATIN

REACTIONS (3)
  - Blindness unilateral [Unknown]
  - Hospitalisation [Unknown]
  - Therapy interrupted [Unknown]
